FAERS Safety Report 9599489 (Version 1)
Quarter: 2013Q4

REPORT INFORMATION
  Report Type: Spontaneous
  Country: US (occurrence: US)
  Receive Date: 20131004
  Receipt Date: 20131004
  Transmission Date: 20140711
  Serious: No
  Sender: FDA-Public Use
  Company Number: US-AMGEN-USASP2013029442

PATIENT
  Age: 67 Year
  Sex: Female
  Weight: 65.76 kg

DRUGS (19)
  1. ENBREL [Suspect]
     Indication: PRODUCT USED FOR UNKNOWN INDICATION
     Dosage: 50 MG, QWK
     Route: 058
  2. VISINE TEARS [Concomitant]
     Dosage: UNK
  3. COLON CARE                         /07880901/ [Concomitant]
     Dosage: UNK
  4. TRAMADOL HCL [Concomitant]
     Dosage: 50 MG, UNK
  5. METHOTREXATE [Concomitant]
     Dosage: 2.5 MG, UNK
  6. VALACYCLOVIR HCL [Concomitant]
     Dosage: 500 MG, UNK
  7. FOLIC ACID [Concomitant]
     Dosage: UNK
  8. DICYCLOMINE                        /00068601/ [Concomitant]
     Dosage: 20 MG, UNK
  9. CENTRUM SILVER                     /02363801/ [Concomitant]
     Dosage: UNK
  10. SUPER B COMPL [Concomitant]
     Dosage: UNK
  11. ACIDOPHILUS [Concomitant]
     Dosage: UNK
  12. MSM [Concomitant]
     Dosage: UNK
  13. CALCIUM MAGNESIUM                  /01412301/ [Concomitant]
     Dosage: UNK
  14. ZINC [Concomitant]
     Dosage: UNK
  15. METAMUCIL                          /00029101/ [Concomitant]
     Dosage: 0.52 G UNK, UNK
  16. LYSINE                             /00919902/ [Concomitant]
     Dosage: 500 MG, UNK
  17. OCUVITE                            /01053801/ [Concomitant]
     Dosage: UNK
  18. FISH OIL [Concomitant]
     Dosage: UNK
  19. ADVIL                              /00044201/ [Concomitant]
     Dosage: 200 MG, UNK

REACTIONS (3)
  - Injection site mass [Recovered/Resolved]
  - Injection site erythema [Recovered/Resolved]
  - Injection site swelling [Recovered/Resolved]
